FAERS Safety Report 11790676 (Version 3)
Quarter: 2016Q2

REPORT INFORMATION
  Report Type: Spontaneous
  Country: US (occurrence: US)
  Receive Date: 20151201
  Receipt Date: 20160428
  Transmission Date: 20160815
  Serious: No
  Sender: FDA-Public Use
  Company Number: US-PFIZER INC-2015394537

PATIENT
  Age: 81 Year
  Sex: Female
  Weight: 57 kg

DRUGS (3)
  1. CLONIDINE. [Suspect]
     Active Substance: CLONIDINE
     Dosage: UNK, 2X/DAY
     Route: 048
  2. SUTENT [Suspect]
     Active Substance: SUNITINIB MALATE
     Indication: GASTROINTESTINAL STROMAL TUMOUR
     Dosage: 37.5 MG, ALTERNATE DAY (EVERY OTHER DAY)
     Dates: start: 201504
  3. SUTENT [Suspect]
     Active Substance: SUNITINIB MALATE
     Dosage: 37.5 MG, DAILY (VARIOUS DOSE ADJUSTMENT DURING THE TX DURATION MOSTLY TAKEN EVERY OTHER DAY)
     Route: 048
     Dates: start: 20150422, end: 20160329

REACTIONS (1)
  - Dry mouth [Unknown]
